FAERS Safety Report 13899642 (Version 1)
Quarter: 2017Q3

REPORT INFORMATION
  Report Type: Spontaneous
  Country: US (occurrence: None)
  Receive Date: 20170818
  Receipt Date: 20170818
  Transmission Date: 20171127
  Serious: No
  Sender: FDA-Public Use
  Company Number: None

PATIENT
  Age: 52 Year
  Sex: Female

DRUGS (7)
  1. PROMACTA [Suspect]
     Active Substance: ELTROMBOPAG OLAMINE
     Indication: IMMUNE THROMBOCYTOPENIC PURPURA
     Route: 048
  2. PROBIOTIC [Concomitant]
     Active Substance: PROBIOTICS NOS
  3. STOOL SOFTNER [Concomitant]
  4. NORVASC [Concomitant]
     Active Substance: AMLODIPINE BESYLATE
  5. PERCOCET [Concomitant]
     Active Substance: ACETAMINOPHEN\OXYCODONE HYDROCHLORIDE
  6. IRON [Concomitant]
     Active Substance: IRON
  7. VITAMIN D [Concomitant]
     Active Substance: CHOLECALCIFEROL

REACTIONS (5)
  - Pain in extremity [None]
  - Musculoskeletal pain [None]
  - Arthralgia [None]
  - Discomfort [None]
  - Ocular hyperaemia [None]

NARRATIVE: CASE EVENT DATE: 20170817
